FAERS Safety Report 9759618 (Version 3)
Quarter: 2015Q3

REPORT INFORMATION
  Report Type: Spontaneous
  Country: US (occurrence: US)
  Receive Date: 20131216
  Receipt Date: 20150806
  Transmission Date: 20151125
  Serious: No
  Sender: FDA-Public Use
  Company Number: US-GILEAD-2010-0028234

PATIENT
  Age: 70 Year
  Sex: Female
  Weight: 63.05 kg

DRUGS (18)
  1. OXYGEN. [Concomitant]
     Active Substance: OXYGEN
  2. CLONIDINE. [Concomitant]
     Active Substance: CLONIDINE
  3. AMITRIPTYLINE [Concomitant]
     Active Substance: AMITRIPTYLINE
  4. POLOXAMER [Concomitant]
     Active Substance: POLOXAMER
  5. NEXIUM [Concomitant]
     Active Substance: ESOMEPRAZOLE MAGNESIUM
  6. KETAMINE [Concomitant]
     Active Substance: KETAMINE
  7. PROAIR HFA [Concomitant]
     Active Substance: ALBUTEROL SULFATE
  8. ALLEGRA [Concomitant]
     Active Substance: FEXOFENADINE HYDROCHLORIDE
  9. SPIRONOLACTONE. [Concomitant]
     Active Substance: SPIRONOLACTONE
  10. GABAPENTIN. [Concomitant]
     Active Substance: GABAPENTIN
  11. KETOPROFEN. [Concomitant]
     Active Substance: KETOPROFEN
  12. REMODULIN [Concomitant]
     Active Substance: TREPROSTINIL
  13. WARFARIN [Concomitant]
     Active Substance: WARFARIN
  14. LYRICA [Concomitant]
     Active Substance: PREGABALIN
  15. LIDOCAINE. [Concomitant]
     Active Substance: LIDOCAINE
  16. CALCIUM +D [Concomitant]
     Active Substance: CALCIUM\VITAMIN D
  17. LETAIRIS [Suspect]
     Active Substance: AMBRISENTAN
     Indication: PULMONARY ARTERIAL HYPERTENSION
     Route: 048
     Dates: start: 20090130
  18. LECITHIN [Concomitant]
     Active Substance: LECITHIN

REACTIONS (2)
  - Syncope [Unknown]
  - Malaise [Unknown]
